FAERS Safety Report 6178442-6 (Version None)
Quarter: 2009Q2

REPORT INFORMATION
  Report Type: 
  Country: None (occurrence: None)
  Receive Date: 20090504
  Receipt Date: 20080429
  Transmission Date: 20091009
  Serious: No
  Sender: FDA-Public Use
  Company Number: US-ALEXION-A200700001

PATIENT

DRUGS (36)
  1. SOLIRIS [Suspect]
     Indication: PAROXYSMAL NOCTURNAL HAEMOGLOBINURIA
     Dosage: 600 MG, SINGLE
     Route: 042
     Dates: start: 20070410, end: 20070410
  2. SOLIRIS [Suspect]
     Dosage: 600 MG, SINGLE
     Route: 042
     Dates: start: 20070417, end: 20070417
  3. SOLIRIS [Suspect]
     Dosage: 600 MG, SINGLE
     Route: 042
     Dates: start: 20070424, end: 20070424
  4. SOLIRIS [Suspect]
     Dosage: 600 MG, SINGLE
     Route: 042
     Dates: start: 20070501, end: 20070501
  5. SOLIRIS [Suspect]
     Dosage: 900 MG, SINGLE
     Route: 042
     Dates: start: 20080508, end: 20080508
  6. SOLIRIS [Suspect]
     Dosage: 900 MG, SINGLE
     Route: 042
     Dates: start: 20070522, end: 20070522
  7. SOLIRIS [Suspect]
     Dosage: 900 MG, SINGLE
     Route: 042
     Dates: start: 20070605, end: 20070605
  8. SOLIRIS [Suspect]
     Dosage: 900 MG, SINGLE
     Route: 042
     Dates: start: 20070619, end: 20070619
  9. SOLIRIS [Suspect]
     Dosage: 900 MG, SINGLE
     Route: 042
     Dates: start: 20070703, end: 20070703
  10. SOLIRIS [Suspect]
     Dosage: 900 MG, SINGLE
     Route: 042
     Dates: start: 20070717, end: 20070717
  11. SOLIRIS [Suspect]
     Dosage: 900 MG, SINGLE
     Route: 042
     Dates: start: 20070731, end: 20070731
  12. SOLIRIS [Suspect]
     Dosage: 900 MG, SINGLE
     Route: 042
     Dates: start: 20070814, end: 20070814
  13. SOLIRIS [Suspect]
     Dosage: 900 MG, SINGLE
     Route: 042
     Dates: start: 20070828, end: 20070828
  14. SOLIRIS [Suspect]
     Dosage: 900 MG, SINGLE
     Route: 042
     Dates: start: 20070911, end: 20070911
  15. SOLIRIS [Suspect]
     Dosage: 900 MG, SINGLE
     Route: 042
     Dates: start: 20070925, end: 20070925
  16. SOLIRIS [Suspect]
     Dosage: 900 MG, SINGLE
     Route: 042
     Dates: start: 20071009, end: 20071009
  17. SOLIRIS [Suspect]
     Dosage: 900 MG, SINGLE
     Route: 042
     Dates: start: 20071023, end: 20071023
  18. SOLIRIS [Suspect]
     Dosage: 900 MG, SINGLE
     Route: 042
     Dates: start: 20071106, end: 20071106
  19. SOLIRIS [Suspect]
     Dosage: 900 MG, SINGLE
     Route: 042
     Dates: start: 20071128, end: 20071128
  20. SOLIRIS [Suspect]
     Dosage: 900 MG, SINGLE
     Route: 042
     Dates: start: 20071204, end: 20071204
  21. PROCRIT /00909301/ [Concomitant]
     Indication: ANAEMIA
     Dosage: 80000 UT, WEEKLY
     Route: 058
     Dates: start: 20060101
  22. VITAMIN B12 /00056201/ [Concomitant]
     Indication: ANAEMIA
     Dosage: UNK,UNK, MONTHLY
     Route: 058
     Dates: start: 20060101
  23. ALBUTEROL SULFATE [Concomitant]
     Indication: ASTHMA
     Dosage: .083 %, PRN
  24. COREG [Concomitant]
     Indication: CARDIOMYOPATHY
     Dosage: 12.5 MG, BID
     Route: 048
  25. METFORMIN HCL [Concomitant]
     Indication: DIABETES MELLITUS
     Dosage: 500 MG, BID
     Route: 048
  26. GEMFIBROZIL [Concomitant]
     Dosage: 600 MG, QD
     Route: 048
  27. SYNTHROID [Concomitant]
     Indication: HYPOTHYROIDISM
     Dosage: 125 UG, QD
     Route: 048
  28. CARISOPRODOL [Concomitant]
     Indication: MUSCLE SPASMS
     Dosage: 350 MG, 2 TABLETS AT NIGHT
     Route: 048
  29. ACETAMINOPHEN AND HYDROCODONE BITARTRATE [Concomitant]
     Indication: PAIN
     Dosage: 5MG/500MG, THREE TIMES DAILY
     Route: 048
  30. CLONAZEPAM [Concomitant]
     Dosage: .5 MG, AT NIGHT
     Route: 048
  31. ASPIRIN [Concomitant]
     Indication: CARDIOMYOPATHY
     Dosage: 81 MG, QD
     Route: 048
  32. FERROUS SULFATE TAB [Concomitant]
     Indication: ANAEMIA
     Dosage: 150 MG, BID
     Route: 048
  33. FOLIC ACID [Concomitant]
     Indication: MEDICAL DIET
     Dosage: UNK, QD
     Route: 048
  34. MULTIVITAMIN /00831701/ [Concomitant]
     Indication: MEDICAL DIET
     Dosage: UNK, QD
     Route: 048
  35. BLOOD, WHOLE [Concomitant]
     Dosage: 2 UT, EVERY TWO WEEKS
     Route: 042
     Dates: start: 20060101
  36. VACCINES [Concomitant]
     Indication: INFECTION PROPHYLAXIS
     Dosage: UNK, SINGLE
     Dates: start: 20070327, end: 20070327

REACTIONS (4)
  - HEADACHE [None]
  - MALAISE [None]
  - PYREXIA [None]
  - TEETH BRITTLE [None]
